FAERS Safety Report 14639662 (Version 1)
Quarter: 2018Q1

REPORT INFORMATION
  Report Type: Other
  Country: US (occurrence: US)
  Receive Date: 20180315
  Receipt Date: 20180315
  Transmission Date: 20180509
  Serious: Yes (Hospitalization, Other)
  Sender: FDA-Public Use
  Company Number: US-VELOXIS PHARMACEUTICALS-2043792

PATIENT
  Age: 53 Year
  Sex: Male

DRUGS (8)
  1. METHYLPREDNISOLONE. [Suspect]
     Active Substance: METHYLPREDNISOLONE
  2. BUSULFAN. [Concomitant]
     Active Substance: BUSULFAN
  3. FLUDARABINE [Concomitant]
     Active Substance: FLUDARABINE PHOSPHATE
  4. MYCOPHENOLATE MOFETIL. [Suspect]
     Active Substance: MYCOPHENOLATE MOFETIL
  5. PENTAMIDINE [Concomitant]
     Active Substance: PENTAMIDINE
  6. ENVARSUS XR [Suspect]
     Active Substance: TACROLIMUS
     Indication: STEM CELL TRANSPLANT
  7. ACYCLOVIR. [Concomitant]
     Active Substance: ACYCLOVIR
  8. TRIMETHOPRIM SULFAMETHOXAZOLE [Concomitant]
     Active Substance: SULFAMETHOXAZOLE\TRIMETHOPRIM

REACTIONS (5)
  - Intentional product use issue [Unknown]
  - Influenza [Unknown]
  - Pneumocystis jirovecii pneumonia [Unknown]
  - Graft versus host disease in gastrointestinal tract [Unknown]
  - Graft versus host disease [Unknown]
